FAERS Safety Report 25223240 (Version 1)
Quarter: 2025Q2

REPORT INFORMATION
  Report Type: Spontaneous
  Country: US (occurrence: US)
  Receive Date: 20250422
  Receipt Date: 20250422
  Transmission Date: 20250716
  Serious: Yes (Death)
  Sender: DR REDDYS
  Company Number: US-DRL-USA-USA/2025/04/005129

PATIENT
  Age: 96 Year
  Sex: Female

DRUGS (10)
  1. ESZOPICLONE [Suspect]
     Active Substance: ESZOPICLONE
     Indication: Relaxation therapy
     Route: 065
  2. RAMELTEON [Suspect]
     Active Substance: RAMELTEON
     Indication: Relaxation therapy
     Route: 065
  3. DIPHENHYDRAMINE [Suspect]
     Active Substance: DIPHENHYDRAMINE
     Indication: Relaxation therapy
     Route: 065
  4. METHOCARBAMOL [Suspect]
     Active Substance: METHOCARBAMOL
     Indication: Relaxation therapy
     Route: 065
  5. AMBIEN [Suspect]
     Active Substance: ZOLPIDEM TARTRATE
     Indication: Relaxation therapy
     Route: 004
     Dates: start: 2023
  6. ZALEPLON [Suspect]
     Active Substance: ZALEPLON
     Indication: Relaxation therapy
     Route: 065
  7. MELATONIN [Suspect]
     Active Substance: MELATONIN
     Indication: Relaxation therapy
     Route: 065
  8. VALIUM [Suspect]
     Active Substance: DIAZEPAM
     Indication: Relaxation therapy
     Route: 065
  9. ATIVAN [Suspect]
     Active Substance: LORAZEPAM
     Indication: Relaxation therapy
     Route: 065
  10. RESTORIL [Suspect]
     Active Substance: TEMAZEPAM
     Indication: Relaxation therapy
     Route: 065

REACTIONS (2)
  - Cardiac arrest [Fatal]
  - Overdose [Fatal]

NARRATIVE: CASE EVENT DATE: 20231010
